FAERS Safety Report 20016458 (Version 1)
Quarter: 2021Q4

REPORT INFORMATION
  Report Type: Spontaneous
  Country: US (occurrence: None)
  Receive Date: 20211103
  Receipt Date: 20211103
  Transmission Date: 20220303
  Serious: Yes (Life-Threatening, Hospitalization, Disabling)
  Sender: FDA-Public Use
  Company Number: None

PATIENT
  Age: 55 Year
  Sex: Female
  Weight: 126 kg

DRUGS (1)
  1. ACTEMRA [Suspect]
     Active Substance: TOCILIZUMAB
     Indication: Rheumatoid arthritis
     Dosage: OTHER QUANTITY : 8 MG/KG;?OTHER FREQUENCY : MONTHLY;?
     Route: 042

REACTIONS (7)
  - Blister [None]
  - Arthralgia [None]
  - Staphylococcal infection [None]
  - Immobile [None]
  - Product label issue [None]
  - Device related infection [None]
  - Arthritis infective [None]

NARRATIVE: CASE EVENT DATE: 20210811
